FAERS Safety Report 12101613 (Version 4)
Quarter: 2016Q2

REPORT INFORMATION
  Report Type: Spontaneous
  Country: US (occurrence: US)
  Receive Date: 20160222
  Receipt Date: 20160404
  Transmission Date: 20160815
  Serious: Yes (Other)
  Sender: FDA-Public Use
  Company Number: US-AKORN PHARMACEUTICALS-2016AKN00098

PATIENT
  Sex: Female

DRUGS (2)
  1. MYORISAN [Suspect]
     Active Substance: ISOTRETINOIN
     Indication: ACNE
     Dosage: 20 MG, UNK
     Dates: start: 20151015, end: 20151115
  2. MYORISAN [Suspect]
     Active Substance: ISOTRETINOIN
     Indication: ACNE
     Dosage: 40 MG, UNK
     Dates: start: 20151116, end: 201512

REACTIONS (1)
  - Knee operation [Unknown]
